FAERS Safety Report 6400489-2 (Version None)
Quarter: 2009Q4

REPORT INFORMATION
  Report Type: 
  Country: None (occurrence: None)
  Receive Date: 20091014
  Receipt Date: 20091007
  Transmission Date: 20100525
  Serious: Yes (Other)
  Sender: FDA-Public Use
  Company Number: US-BAXTER-2009BH014989

PATIENT
  Age: 53 Year
  Sex: Male
  Weight: 88 kg

DRUGS (8)
  1. DEXAMETHASONE 0.5MG TAB [Suspect]
     Indication: NEUROMUSCULAR BLOCKING THERAPY
     Route: 050
     Dates: start: 20090930, end: 20090930
  2. NAROPIN [Suspect]
     Indication: NEUROMUSCULAR BLOCKING THERAPY
     Route: 050
     Dates: start: 20090930, end: 20090930
  3. CARBOCAINE [Suspect]
     Indication: NEUROMUSCULAR BLOCKING THERAPY
     Route: 050
     Dates: start: 20090930, end: 20090930
  4. VITAMINS [Concomitant]
     Indication: SUPPLEMENTATION THERAPY
     Route: 048
  5. ULTRAM [Concomitant]
     Indication: PAIN
     Route: 065
     Dates: end: 20090914
  6. VERSED [Concomitant]
     Indication: PREOPERATIVE CARE
     Route: 042
     Dates: start: 20090930, end: 20090930
  7. FENTANYL [Concomitant]
     Indication: PREOPERATIVE CARE
     Route: 042
  8. CEFAZOLIN [Concomitant]
     Indication: PREOPERATIVE CARE
     Route: 042

REACTIONS (1)
  - GRAND MAL CONVULSION [None]
